FAERS Safety Report 24977272 (Version 1)
Quarter: 2025Q1

REPORT INFORMATION
  Report Type: Spontaneous
  Country: NO (occurrence: NO)
  Receive Date: 20250217
  Receipt Date: 20250217
  Transmission Date: 20250409
  Serious: Yes (Life-Threatening, Hospitalization, Other)
  Sender: CHEPLAPHARM
  Company Number: None

PATIENT
  Age: 26 Year
  Sex: Male
  Weight: 92 kg

DRUGS (10)
  1. OLANZAPINE [Suspect]
     Active Substance: OLANZAPINE
     Indication: Suicidal ideation
     Dosage: ADMINISTERED IN THE EVENING. INITIALLY 5 MG FROM APPROX. 10/JAN/2025, INCREASED TO 10 MG APPROX. ...
     Route: 048
     Dates: start: 202501, end: 202501
  2. OLANZAPINE [Suspect]
     Active Substance: OLANZAPINE
     Indication: Restlessness
     Dosage: ADMINISTERED IN THE EVENING. INITIALLY 5 MG FROM APPROX. 10/JAN/2025, INCREASED TO 10 MG APPROX. ...
     Route: 048
     Dates: start: 202501, end: 202501
  3. OLANZAPINE [Suspect]
     Active Substance: OLANZAPINE
     Indication: Sleep disorder
     Dosage: ADMINISTERED IN THE EVENING. INITIALLY 5 MG FROM APPROX. 10/JAN/2025, INCREASED TO 10 MG APPROX. ...
     Route: 048
     Dates: start: 202501, end: 202501
  4. OLANZAPINE [Suspect]
     Active Substance: OLANZAPINE
     Indication: Suicidal ideation
     Route: 048
     Dates: start: 20250110
  5. OLANZAPINE [Suspect]
     Active Substance: OLANZAPINE
     Indication: Restlessness
     Route: 048
     Dates: start: 20250110
  6. OLANZAPINE [Suspect]
     Active Substance: OLANZAPINE
     Indication: Sleep disorder
     Route: 048
     Dates: start: 20250110
  7. OLANZAPINE [Suspect]
     Active Substance: OLANZAPINE
     Indication: Suicidal ideation
     Route: 048
     Dates: start: 20250128
  8. OLANZAPINE [Suspect]
     Active Substance: OLANZAPINE
     Indication: Restlessness
     Route: 048
     Dates: start: 20250128
  9. OLANZAPINE [Suspect]
     Active Substance: OLANZAPINE
     Indication: Sleep disorder
     Route: 048
     Dates: start: 20250128
  10. Aduvanz kaps [Concomitant]
     Indication: Attention deficit hyperactivity disorder
     Dosage: IN THE MORNING.  LISDEKSAMFETAMIN - ONGOING TREATMENT
     Dates: start: 20241114

REACTIONS (5)
  - Suicidal ideation [Recovered/Resolved with Sequelae]
  - Suicide attempt [Recovered/Resolved with Sequelae]
  - Condition aggravated [Recovered/Resolved with Sequelae]
  - Visual impairment [Not Recovered/Not Resolved]
  - Off label use [Recovered/Resolved]

NARRATIVE: CASE EVENT DATE: 20250110
